FAERS Safety Report 5982507-9 (Version None)
Quarter: 2008Q4

REPORT INFORMATION
  Report Type: 
  Country: None (occurrence: None)
  Receive Date: 20081208
  Receipt Date: 20081128
  Transmission Date: 20090506
  Serious: Yes (Other)
  Sender: FDA-Public Use
  Company Number: GB-JNJFOC-20081200596

PATIENT
  Sex: Female
  Weight: 76 kg

DRUGS (6)
  1. REMICADE [Suspect]
     Indication: RHEUMATOID ARTHRITIS
     Route: 042
  2. TIAMADOL [Concomitant]
  3. MELOXICAM [Concomitant]
  4. METHOTREXATE [Concomitant]
  5. BENDRAFLUAZIDE [Concomitant]
  6. ACETAMINOPHEN [Concomitant]

REACTIONS (1)
  - LYMPHOMA [None]
